FAERS Safety Report 10620331 (Version 1)
Quarter: 2014Q4

REPORT INFORMATION
  Report Type: Spontaneous
  Country: US (occurrence: US)
  Receive Date: 20141202
  Receipt Date: 20141202
  Transmission Date: 20150529
  Serious: Yes (Death, Other)
  Sender: FDA-Public Use
  Company Number: US-PURDUE-USA-2014-0119422

PATIENT
  Age: 66 Year
  Sex: Male

DRUGS (1)
  1. MORPHINE SULFATE (SIMILAR TO NDA 19-516) [Suspect]
     Active Substance: MORPHINE SULFATE
     Indication: PAIN
     Dosage: 30 MG, Q8H

REACTIONS (8)
  - Gun shot wound [Fatal]
  - Decreased appetite [Unknown]
  - Weight decreased [None]
  - Completed suicide [Fatal]
  - Constipation [Unknown]
  - Drug dependence [Unknown]
  - Rhinorrhoea [Unknown]
  - Drug tolerance [Unknown]

NARRATIVE: CASE EVENT DATE: 20140406
